FAERS Safety Report 19748663 (Version 1)
Quarter: 2021Q3

REPORT INFORMATION
  Report Type: Spontaneous
  Country: US (occurrence: US)
  Receive Date: 20210825
  Receipt Date: 20210825
  Transmission Date: 20211014
  Serious: Yes (Death, Hospitalization)
  Sender: FDA-Public Use
  Company Number: None

PATIENT
  Sex: Female
  Weight: 70 kg

DRUGS (5)
  1. DEFERIPRONE [Suspect]
     Active Substance: DEFERIPRONE
     Indication: HEREDITARY HAEMOCHROMATOSIS
     Route: 048
     Dates: start: 20210722, end: 20210812
  2. APAP 1,000MG Q4H PRN [Concomitant]
  3. PEPCID 40MG QD [Concomitant]
  4. VITAMIN D3 400 IU QD [Concomitant]
  5. FUROSEMIDE 40MG QD [Concomitant]

REACTIONS (6)
  - Cellulitis [None]
  - Atrial fibrillation [None]
  - Blood culture positive [None]
  - Urinary tract infection [None]
  - Off label use [None]
  - Oedema [None]
